FAERS Safety Report 5195054-1 (Version None)
Quarter: 2006Q4

REPORT INFORMATION
  Report Type: 
  Country: None (occurrence: None)
  Receive Date: 20061229
  Receipt Date: 20061221
  Transmission Date: 20070319
  Serious: Yes (Other)
  Sender: FDA-Public Use
  Company Number: US-JNJFOC-20061103383

PATIENT
  Sex: Male
  Weight: 58.97 kg

DRUGS (14)
  1. REMICADE [Suspect]
     Route: 042
  2. REMICADE [Suspect]
     Route: 042
  3. REMICADE [Suspect]
     Indication: ANKYLOSING SPONDYLITIS
     Route: 042
  4. REMICADE [Suspect]
     Indication: CROHN'S DISEASE
     Route: 042
  5. PREDNISONE TAB [Concomitant]
  6. FLEXERIL [Concomitant]
  7. VICODIN [Concomitant]
  8. PREVACID [Concomitant]
  9. ASACOL [Concomitant]
  10. FLOMAX [Concomitant]
  11. DETROL [Concomitant]
  12. MULTI-VITAMIN [Concomitant]
  13. CALCIUM [Concomitant]
  14. FOSOMAX [Concomitant]

REACTIONS (1)
  - NERVOUS SYSTEM DISORDER [None]
